FAERS Safety Report 13738586 (Version 2)
Quarter: 2018Q2

REPORT INFORMATION
  Report Type: Report from Study
  Country: US (occurrence: US)
  Receive Date: 20170710
  Receipt Date: 20180627
  Transmission Date: 20180711
  Serious: Yes (Other)
  Sender: FDA-Public Use
  Company Number: US-SAOL THERAPEUTICS-2017SAO00197

PATIENT
  Age: 65 Year
  Sex: Male

DRUGS (16)
  1. CLONIDINE. [Suspect]
     Active Substance: CLONIDINE
     Dosage: 149.82 ?G, \DAY
     Route: 037
     Dates: start: 20160404, end: 20160411
  2. MORPHINE [Suspect]
     Active Substance: MORPHINE
     Dosage: 2.996 MG, \DAY
     Route: 037
     Dates: start: 20160404, end: 20160411
  3. MORPHINE [Suspect]
     Active Substance: MORPHINE
     Dosage: 2.249 MG, \DAY
     Route: 037
     Dates: start: 20160411
  4. COMPOUNDED BACLOFEN [Suspect]
     Active Substance: BACLOFEN
     Dosage: 100.71 ?G, \DAY, MAX DOSE
     Route: 037
     Dates: start: 20160404, end: 20160411
  5. CLONIDINE. [Suspect]
     Active Substance: CLONIDINE
     Dosage: 201.43 ?G, \DAY, MAX DOSE
     Route: 037
     Dates: start: 20160404, end: 20160411
  6. MORPHINE [Suspect]
     Active Substance: MORPHINE
     Dosage: 4.028 MG, \DAY, MAX DOSE
     Route: 037
     Dates: start: 20160404, end: 20160411
  7. BUPIVACAINE. [Suspect]
     Active Substance: BUPIVACAINE
     Dosage: 12.337 MG, \DAY, MAX DOSE
     Route: 037
     Dates: start: 20160411
  8. MORPHINE [Suspect]
     Active Substance: MORPHINE
     Dosage: 3.289 MG, \DAY, MAX DOSE
     Route: 037
     Dates: start: 20160411
  9. BUPIVACAINE. [Suspect]
     Active Substance: BUPIVACAINE
     Dosage: 15.107 MG, \DAY, MAX DOSE
     Route: 037
     Dates: start: 20160404, end: 20160411
  10. BUPIVACAINE. [Suspect]
     Active Substance: BUPIVACAINE
     Dosage: 8.436 MG, \DAY
     Route: 037
     Dates: start: 20160411
  11. COMPOUNDED BACLOFEN [Suspect]
     Active Substance: BACLOFEN
     Dosage: 74.91 ?G, \DAY
     Route: 037
     Dates: start: 20160404, end: 20160411
  12. COMPOUNDED BACLOFEN [Suspect]
     Active Substance: BACLOFEN
     Dosage: 56.24 ?G, \DAY
     Route: 037
     Dates: start: 20160411
  13. CLONIDINE. [Suspect]
     Active Substance: CLONIDINE
     Dosage: 112.48 ?G, \DAY
     Route: 037
     Dates: start: 20160411
  14. COMPOUNDED BACLOFEN [Suspect]
     Active Substance: BACLOFEN
     Dosage: 82.25 ?G, \DAY, MAX DOSE
     Route: 037
     Dates: start: 20160411
  15. BUPIVACAINE. [Suspect]
     Active Substance: BUPIVACAINE
     Dosage: 11.237 MG, \DAY
     Route: 037
     Dates: start: 20160404, end: 20160411
  16. CLONIDINE. [Suspect]
     Active Substance: CLONIDINE
     Dosage: 164.50 ?G, \DAY, MAX DOSE
     Route: 037
     Dates: start: 20160411

REACTIONS (8)
  - Sedation [Not Recovered/Not Resolved]
  - Pain [Recovered/Resolved]
  - Device malfunction [Recovered/Resolved]
  - Implant site pain [Recovered/Resolved]
  - Balance disorder [Recovered/Resolved]
  - Hallucination [Recovered/Resolved]
  - Oedema [Recovered/Resolved]
  - Cough [Recovered/Resolved]

NARRATIVE: CASE EVENT DATE: 20160411
